FAERS Safety Report 5135502-6 (Version None)
Quarter: 2006Q4

REPORT INFORMATION
  Report Type: 
  Country: None (occurrence: None)
  Receive Date: 20061026
  Receipt Date: 20061016
  Transmission Date: 20070319
  Serious: Yes (Hospitalization)
  Sender: FDA-Public Use
  Company Number: US-JNJFOC-20061004899

PATIENT
  Age: 32 Year
  Sex: Female

DRUGS (7)
  1. FENTANYL [Suspect]
     Indication: DRUG USE FOR UNKNOWN INDICATION
     Dosage: X4
     Route: 062
  2. ANTICONVULSANT [Suspect]
     Indication: INTENTIONAL DRUG MISUSE
     Route: 065
  3. SEDATIVE/HYPNOTIC/ANTI-ANXIETY [Suspect]
     Indication: INTENTIONAL DRUG MISUSE
     Dosage: X30
     Route: 065
  4. ANTI-PSYCHOTIC [Suspect]
     Indication: INTENTIONAL DRUG MISUSE
     Route: 065
  5. SSRI [Suspect]
     Indication: INTENTIONAL DRUG MISUSE
     Route: 065
  6. CARISOPRODOL [Suspect]
     Indication: INTENTIONAL DRUG MISUSE
     Dosage: X30
     Route: 065
  7. MUSCLE RELAXERS [Suspect]
     Indication: INTENTIONAL DRUG MISUSE
     Dosage: X ABOUT 50
     Route: 065

REACTIONS (6)
  - APNOEA [None]
  - CONFUSIONAL STATE [None]
  - DEPRESSED LEVEL OF CONSCIOUSNESS [None]
  - DYSARTHRIA [None]
  - MULTIPLE DRUG OVERDOSE [None]
  - VOMITING [None]
